FAERS Safety Report 8579573-3 (Version None)
Quarter: 2012Q3

REPORT INFORMATION
  Report Type: 
  Country: None (occurrence: None)
  Receive Date: 20120808
  Receipt Date: 20120806
  Transmission Date: 20120928
  Serious: Yes (Other)
  Sender: FDA-Public Use
  Company Number: PHEH2012US004655

PATIENT
  Sex: Female

DRUGS (1)
  1. TEGRETOL [Suspect]
     Dosage: 200 MG, UNK
     Dates: start: 19800701

REACTIONS (5)
  - COUGH [None]
  - BRONCHITIS [None]
  - CONVULSION [None]
  - HEADACHE [None]
  - NASOPHARYNGITIS [None]
